FAERS Safety Report 18599935 (Version 2)
Quarter: 2021Q1

REPORT INFORMATION
  Report Type: Spontaneous
  Country: AU (occurrence: AU)
  Receive Date: 20201210
  Receipt Date: 20210107
  Transmission Date: 20210419
  Serious: Yes (Other)
  Sender: FDA-Public Use
  Company Number: AU-ASTRAZENECA-2020SF62666

PATIENT
  Age: 84 Year
  Sex: Female

DRUGS (12)
  1. DURVALUMAB. [Suspect]
     Active Substance: DURVALUMAB
     Indication: NON-SMALL CELL LUNG CANCER
     Route: 042
  2. ASPIRIN. [Concomitant]
     Active Substance: ASPIRIN
     Dosage: 100 MG DAILY,
  3. CARBOPLATIN. [Concomitant]
     Active Substance: CARBOPLATIN
  4. NIFEDIPINE. [Concomitant]
     Active Substance: NIFEDIPINE
     Dosage: 10 MG DAILY
  5. RADIOTHERAPY [Concomitant]
     Active Substance: RADIATION THERAPY
     Dosage: 50 GY OVER 30 SESSIONS
  6. AMITRIPTYLINE [Concomitant]
     Active Substance: AMITRIPTYLINE
     Dosage: 10 MG DAILY
  7. FRUSEMIDE [Concomitant]
     Active Substance: FUROSEMIDE
     Dosage: 20 MG DAILY
  8. METHADONE [Concomitant]
     Active Substance: METHADONE HYDROCHLORIDE
     Dosage: 5 MG DAILY,
  9. PREGABALIN. [Concomitant]
     Active Substance: PREGABALIN
     Dosage: 75 MG MANE AND 150 MG NOCTE,
  10. PACLITAXEL. [Concomitant]
     Active Substance: PACLITAXEL
  11. DURVALUMAB. [Suspect]
     Active Substance: DURVALUMAB
     Indication: NON-SMALL CELL LUNG CANCER
     Route: 042
  12. VALSARTAN. [Concomitant]
     Active Substance: VALSARTAN

REACTIONS (6)
  - Back pain [Unknown]
  - Vasculitis [Unknown]
  - Blue toe syndrome [Unknown]
  - Pneumonitis [Unknown]
  - Pain in extremity [Unknown]
  - Arthralgia [Unknown]
